FAERS Safety Report 16831089 (Version 1)
Quarter: 2019Q3

REPORT INFORMATION
  Report Type: Spontaneous
  Country: US (occurrence: US)
  Receive Date: 20190730
  Receipt Date: 20190730
  Transmission Date: 20191005
  Serious: No
  Sender: FDA-Public Use
  Company Number: None

PATIENT
  Age: 41 Year
  Sex: Female

DRUGS (1)
  1. TEMOZOLOMIDE 100MG CAP [Suspect]
     Active Substance: TEMOZOLOMIDE
     Dates: start: 20190312, end: 20190530

REACTIONS (4)
  - Skin lesion [None]
  - Rash generalised [None]
  - Drug hypersensitivity [None]
  - Recalled product [None]

NARRATIVE: CASE EVENT DATE: 20190531
